FAERS Safety Report 6418901-1 (Version None)
Quarter: 2009Q4

REPORT INFORMATION
  Report Type: 
  Country: None (occurrence: None)
  Receive Date: 20091028
  Receipt Date: 20091028
  Transmission Date: 20100525
  Serious: Yes (Hospitalization)
  Sender: FDA-Public Use
  Company Number: None

PATIENT
  Sex: Female
  Weight: 95 kg

DRUGS (7)
  1. SOLIRIS [Suspect]
     Indication: PROPHYLAXIS AGAINST TRANSPLANT REJECTION
     Dosage: 1200 MG TWICE IV; 600 MG SIX IV
     Route: 042
     Dates: start: 20091009, end: 20091017
  2. SOLIRIS [Suspect]
     Indication: PROPHYLAXIS AGAINST TRANSPLANT REJECTION
     Dosage: 1200 MG TWICE IV; 600 MG SIX IV
     Route: 042
     Dates: start: 20091010
  3. SOLIRIS [Suspect]
     Indication: PROPHYLAXIS AGAINST TRANSPLANT REJECTION
     Dosage: 1200 MG TWICE IV; 600 MG SIX IV
     Route: 042
     Dates: start: 20091016
  4. SOLIRIS [Suspect]
     Indication: PROPHYLAXIS AGAINST TRANSPLANT REJECTION
     Dosage: 1200 MG TWICE IV; 600 MG SIX IV
     Route: 042
     Dates: start: 20091018
  5. SOLIRIS [Suspect]
     Indication: PROPHYLAXIS AGAINST TRANSPLANT REJECTION
     Dosage: 1200 MG TWICE IV; 600 MG SIX IV
     Route: 042
     Dates: start: 20091020
  6. SOLIRIS [Suspect]
     Indication: PROPHYLAXIS AGAINST TRANSPLANT REJECTION
     Dosage: 1200 MG TWICE IV; 600 MG SIX IV
     Route: 042
     Dates: start: 20091021
  7. SOLIRIS [Suspect]
     Indication: PROPHYLAXIS AGAINST TRANSPLANT REJECTION
     Dosage: 1200 MG TWICE IV; 600 MG SIX IV
     Route: 042
     Dates: start: 20091022

REACTIONS (6)
  - BLOOD CREATININE INCREASED [None]
  - ELECTROCARDIOGRAM QRS COMPLEX PROLONGED [None]
  - ELECTROCARDIOGRAM T WAVE PEAKED [None]
  - GRAFT DYSFUNCTION [None]
  - HAEMODIALYSIS [None]
  - HYPERKALAEMIA [None]
